FAERS Safety Report 20193692 (Version 1)
Quarter: 2021Q4

REPORT INFORMATION
  Report Type: Spontaneous
  Country: ES (occurrence: ES)
  Receive Date: 20211216
  Receipt Date: 20211216
  Transmission Date: 20220303
  Serious: Yes (Hospitalization)
  Sender: FDA-Public Use
  Company Number: ES-MYLANLABS-2021M1093198

PATIENT
  Age: 39 Year
  Sex: Female

DRUGS (3)
  1. ALPROSTADIL [Suspect]
     Active Substance: ALPROSTADIL
     Dosage: UNK UNK, CYCLE,THREE WEEK CYCLE
     Route: 042
  2. UROKINASE [Suspect]
     Active Substance: UROKINASE
     Indication: Peripheral arterial occlusive disease
     Dosage: UNK
     Route: 013
  3. UROKINASE [Suspect]
     Active Substance: UROKINASE
     Indication: Peripheral artery occlusion

REACTIONS (1)
  - Drug ineffective [Unknown]
